FAERS Safety Report 7455049-1 (Version None)
Quarter: 2011Q2

REPORT INFORMATION
  Report Type: 
  Country: None (occurrence: None)
  Receive Date: 20110503
  Receipt Date: 20110421
  Transmission Date: 20111010
  Serious: Yes (Other)
  Sender: FDA-Public Use
  Company Number: IN-BRISTOL-MYERS SQUIBB COMPANY-15668098

PATIENT
  Age: 33 Year
  Sex: Female

DRUGS (6)
  1. MYCOPHENOLATE MOFETIL [Suspect]
     Dates: start: 20090219
  2. ALLOPURINOL [Concomitant]
     Dates: start: 20100604
  3. ALENDRONATE SODIUM [Concomitant]
     Dates: start: 20110125
  4. SHELCAL [Concomitant]
     Dates: start: 20090219
  5. ABATACEPT [Suspect]
     Indication: SYSTEMIC LUPUS ERYTHEMATOSUS
     Route: 042
     Dates: start: 20100223, end: 20110412
  6. PREDNISOLONE [Suspect]
     Dates: start: 20081113

REACTIONS (1)
  - OSTEONECROSIS [None]
